FAERS Safety Report 10676637 (Version 4)
Quarter: 2015Q2

REPORT INFORMATION
  Report Type: Spontaneous
  Country: US (occurrence: US)
  Receive Date: 20141226
  Receipt Date: 20150427
  Transmission Date: 20150821
  Serious: Yes (Other)
  Sender: FDA-Public Use
  Company Number: US-BAYER-2014-188443

PATIENT
  Age: 40 Year
  Sex: Female
  Weight: 51 kg

DRUGS (1)
  1. MIRENA [Suspect]
     Active Substance: LEVONORGESTREL
     Indication: CONTRACEPTION
     Dosage: 20 MCG/24HR, CONT
     Route: 015
     Dates: start: 20130217

REACTIONS (4)
  - Ruptured ectopic pregnancy [Recovered/Resolved]
  - Haemorrhage in pregnancy [Recovered/Resolved]
  - Ectopic pregnancy with contraceptive device [Recovered/Resolved]
  - Drug ineffective [None]

NARRATIVE: CASE EVENT DATE: 2014
